FAERS Safety Report 24180133 (Version 1)
Quarter: 2024Q3

REPORT INFORMATION
  Report Type: Report from Study
  Country: US (occurrence: US)
  Receive Date: 20240806
  Receipt Date: 20240806
  Transmission Date: 20241016
  Serious: Yes (Other)
  Sender: TAKEDA
  Company Number: US-TAKEDA-2024TUS076406

PATIENT
  Sex: Female

DRUGS (1)
  1. FRUQUINTINIB [Suspect]
     Active Substance: FRUQUINTINIB
     Indication: Colon cancer
     Dosage: 5 MILLIGRAM, QD
     Route: 048
     Dates: start: 20240716

REACTIONS (6)
  - Hepatic neoplasm [Unknown]
  - Pneumonia [Unknown]
  - Headache [Unknown]
  - Hepatic lesion [Unknown]
  - Dyspnoea [Unknown]
  - Blood pressure increased [Unknown]
